FAERS Safety Report 7984064 (Version 2)
Quarter: 2012Q4

REPORT INFORMATION
  Report Type: 
  Country: NZ (occurrence: NZ)
  Receive Date: 20110609
  Receipt Date: 20121120
  Transmission Date: 20130627
  Serious: Yes (Death)
  Sender: FDA-Public Use
  Company Number: PHHO2007NZ09430

PATIENT
  Age: 90 Year
  Sex: Female

DRUGS (5)
  1. CLOZARIL [Suspect]
     Indication: SCHIZOPHRENIA
     Dosage: 50 mg, nocte
     Route: 048
     Dates: start: 20030616, end: 20070528
  2. OMEPRAZOLE [Concomitant]
     Route: 048
     Dates: end: 20070528
  3. PAROXETINE [Concomitant]
     Route: 058
     Dates: end: 20070528
  4. MORPHINE [Concomitant]
     Indication: PROPHYLAXIS
     Route: 058
     Dates: start: 20070601
  5. MIDAZOLAM [Concomitant]
     Indication: PROPHYLAXIS
     Dosage: UNK UKN, UNK
     Route: 058
     Dates: start: 20070601

REACTIONS (2)
  - Pneumonia [Fatal]
  - Dyspnoea [Fatal]
